FAERS Safety Report 7688711-6 (Version None)
Quarter: 2011Q3

REPORT INFORMATION
  Report Type: 
  Country: None (occurrence: None)
  Receive Date: 20110817
  Receipt Date: 20110805
  Transmission Date: 20111222
  Serious: Yes (Death, Hospitalization)
  Sender: FDA-Public Use
  Company Number: GR-VIIV HEALTHCARE LIMITED-B0730504A

PATIENT
  Sex: Female
  Weight: 55 kg

DRUGS (4)
  1. NORVIR [Concomitant]
     Indication: HIV INFECTION
     Route: 048
     Dates: start: 20090324, end: 20110705
  2. PREZISTA [Concomitant]
     Indication: HIV INFECTION
     Route: 048
     Dates: start: 20100617, end: 20110524
  3. INTELENCE [Concomitant]
     Indication: HIV INFECTION
     Route: 048
     Dates: start: 20090719, end: 20110705
  4. MARAVIROC [Suspect]
     Indication: HIV INFECTION
     Dosage: 150MG TWICE PER DAY
     Route: 048
     Dates: start: 20100617, end: 20110531

REACTIONS (3)
  - LEUKOPENIA [None]
  - ANAEMIA [None]
  - COLON CANCER [None]
